FAERS Safety Report 7218981-X (Version None)
Quarter: 2011Q1

REPORT INFORMATION
  Report Type: 
  Country: None (occurrence: None)
  Receive Date: 20110111
  Receipt Date: 20110105
  Transmission Date: 20110831
  Serious: Yes (Hospitalization)
  Sender: FDA-Public Use
  Company Number: US-BIOGENIDEC-2011BI000777

PATIENT
  Age: 55 Year
  Sex: Female
  Weight: 79 kg

DRUGS (2)
  1. METFORMIN [Concomitant]
     Indication: DIABETES MELLITUS
     Dates: end: 20100101
  2. AVONEX [Suspect]
     Indication: MULTIPLE SCLEROSIS
     Route: 030
     Dates: start: 20030701

REACTIONS (7)
  - SCHIZOPHRENIFORM DISORDER [None]
  - INTESTINAL OBSTRUCTION [None]
  - TARDIVE DYSKINESIA [None]
  - AGITATION [None]
  - DYSKINESIA [None]
  - TONGUE INJURY [None]
  - REPETITIVE SPEECH [None]
